FAERS Safety Report 18769458 (Version 3)
Quarter: 2021Q2

REPORT INFORMATION
  Report Type: Spontaneous
  Country: FR (occurrence: FR)
  Receive Date: 20210121
  Receipt Date: 20210603
  Transmission Date: 20210717
  Serious: Yes (Disabling)
  Sender: FDA-Public Use
  Company Number: NVSC2021FR012231

PATIENT
  Sex: Male

DRUGS (1)
  1. ROPINIROLE. [Suspect]
     Active Substance: ROPINIROLE
     Indication: TREMOR
     Dosage: 6 MG
     Route: 065
     Dates: start: 202007

REACTIONS (4)
  - Hypokinesia [Unknown]
  - Balance disorder [Unknown]
  - Dizziness [Unknown]
  - General physical health deterioration [Unknown]
